FAERS Safety Report 9227558 (Version 1)
Quarter: 2013Q2

REPORT INFORMATION
  Report Type: Spontaneous
  Country: FR (occurrence: None)
  Receive Date: 20130410
  Receipt Date: 20130410
  Transmission Date: 20140414
  Serious: Yes (Hospitalization)
  Sender: FDA-Public Use
  Company Number: 1655177

PATIENT
  Age: 63 Year
  Sex: Female

DRUGS (2)
  1. CARBOPLATIN [Suspect]
     Indication: OVARIAN CANCER
     Dosage: CYCLICAL
     Route: 042
     Dates: start: 20130108
  2. GEMCITABINE [Suspect]
     Indication: OVARIAN CANCER
     Dates: start: 20130108

REACTIONS (8)
  - Febrile bone marrow aplasia [None]
  - Lung infection [None]
  - Diarrhoea [None]
  - Epistaxis [None]
  - Aphthous stomatitis [None]
  - Blood blister [None]
  - Pulmonary mass [None]
  - Pleural effusion [None]
